FAERS Safety Report 10097972 (Version 2)
Quarter: 2014Q2

REPORT INFORMATION
  Report Type: Report from Study
  Country: US (occurrence: US)
  Receive Date: 20140423
  Receipt Date: 20140513
  Transmission Date: 20141212
  Serious: Yes (Life-Threatening, Other)
  Sender: FDA-Public Use
  Company Number: US-BRISTOL-MYERS SQUIBB COMPANY-20623229

PATIENT
  Age: 66 Year
  Sex: Female

DRUGS (1)
  1. ORENCIA [Suspect]
     Indication: RHEUMATOID ARTHRITIS
     Dosage: LAST INFUSION WAS ON 27-MAR-2014
     Route: 042
     Dates: start: 201308

REACTIONS (3)
  - Respiratory arrest [Unknown]
  - Cellulitis [Unknown]
  - Arthralgia [Unknown]
